FAERS Safety Report 5716790-1 (Version None)
Quarter: 2008Q2

REPORT INFORMATION
  Report Type: 
  Country: None (occurrence: None)
  Receive Date: 20080424
  Receipt Date: 20070625
  Transmission Date: 20081010
  Serious: No
  Sender: FDA-Public Use
  Company Number: US-BAYER-200711983BWH

PATIENT
  Age: 29 Year
  Sex: Male

DRUGS (2)
  1. LEVITRA [Suspect]
     Indication: DRUG USE FOR UNKNOWN INDICATION
     Route: 048
     Dates: start: 20070625
  2. UNKNOWN CHOLESTEROL MEDICATION [Concomitant]

REACTIONS (1)
  - PAINFUL ERECTION [None]
